FAERS Safety Report 5542209-X (Version None)
Quarter: 2007Q4

REPORT INFORMATION
  Report Type: 
  Country: None (occurrence: None)
  Receive Date: 20071129
  Receipt Date: 20070529
  Transmission Date: 20080405
  Serious: Yes (Hospitalization, Other)
  Sender: FDA-Public Use
  Company Number: US200704002772

PATIENT
  Age: 37 Year
  Sex: Male
  Weight: 78.5 kg

DRUGS (6)
  1. ZYPREXA [Suspect]
     Dosage: 10 MG : 15 MG, EACH EVENING
     Dates: start: 20000401, end: 20000501
  2. SEROQUEL [Concomitant]
  3. LITHIUM CARBONATE [Concomitant]
  4. SINEQUAN [Concomitant]
  5. PROZAC [Concomitant]
  6. HALOPERIDOL [Concomitant]

REACTIONS (8)
  - BLOOD CHOLESTEROL ABNORMAL [None]
  - BLOOD TRIGLYCERIDES INCREASED [None]
  - DIABETES MELLITUS [None]
  - DIABETIC COMA [None]
  - DIABETIC KETOACIDOSIS [None]
  - HYPERGLYCAEMIA [None]
  - METABOLIC DISORDER [None]
  - PANCREATITIS [None]
